FAERS Safety Report 8084252 (Version 3)
Quarter: 2013Q2

REPORT INFORMATION
  Report Type: Report from Study
  Country: CH (occurrence: CH)
  Receive Date: 20110810
  Receipt Date: 20130430
  Transmission Date: 20140414
  Serious: Yes (Death, Hospitalization, Other)
  Sender: FDA-Public Use
  Company Number: CH-ROCHE-794334

PATIENT
  Sex: 0

DRUGS (2)
  1. CAPECITABINE [Suspect]
     Indication: RECTAL CANCER
     Route: 048
  2. PANITUMUMAB [Suspect]
     Indication: RECTAL CANCER
     Dosage: FOR 8 WEEKS OVER APPROXIMATELY 60 MINUTES
     Route: 042

REACTIONS (10)
  - Cardiac failure acute [Fatal]
  - Renal failure [Unknown]
  - Erythema multiforme [Unknown]
  - Ulcer [Unknown]
  - Cardiac arrest [Unknown]
  - Enterocolitis [Unknown]
  - Dermatitis acneiform [Unknown]
  - Fatigue [Unknown]
  - Palmar-plantar erythrodysaesthesia syndrome [Unknown]
  - Diarrhoea [Unknown]
